FAERS Safety Report 4677379-9 (Version None)
Quarter: 2005Q2

REPORT INFORMATION
  Report Type: 
  Country: None (occurrence: None)
  Receive Date: 20050531
  Receipt Date: 20050526
  Transmission Date: 20051028
  Serious: Yes (Life-Threatening, Other)
  Sender: FDA-Public Use
  Company Number: 200514875GDDC

PATIENT
  Age: 65 Year
  Sex: Female

DRUGS (8)
  1. FRUSEMIDE [Suspect]
     Indication: ESSENTIAL HYPERTENSION
     Route: 048
     Dates: end: 20041123
  2. VERAPAMIL [Suspect]
     Indication: ESSENTIAL HYPERTENSION
     Route: 048
     Dates: end: 20041123
  3. KARVEZIDE [Suspect]
     Indication: ESSENTIAL HYPERTENSION
     Dosage: DOSE: 300/12.5
     Route: 048
     Dates: end: 20041123
  4. ATENOLOL [Suspect]
     Indication: ESSENTIAL HYPERTENSION
     Route: 048
     Dates: end: 20041123
  5. METFORMIN HCL [Concomitant]
     Indication: DIABETES MELLITUS
     Route: 048
     Dates: end: 20041123
  6. AMARYL [Concomitant]
     Dosage: DOSE: UNK
  7. ALLOPURINOL [Concomitant]
     Dosage: DOSE: UNK
  8. CLOPIDOGREL BISULFATE [Concomitant]
     Dosage: DOSE: UNK

REACTIONS (7)
  - ATRIOVENTRICULAR BLOCK FIRST DEGREE [None]
  - BRADYCARDIA [None]
  - DIZZINESS [None]
  - HYPOTENSION [None]
  - LACTIC ACIDOSIS [None]
  - MALAISE [None]
  - RENAL FAILURE ACUTE [None]
